FAERS Safety Report 7872963 (Version 2)
Quarter: 2013Q2

REPORT INFORMATION
  Report Type: Report from Study
  Country: US (occurrence: US)
  Receive Date: 20110325
  Receipt Date: 20130422
  Transmission Date: 20140414
  Serious: Yes (Other)
  Sender: FDA-Public Use
  Company Number: US-RB-024242-11

PATIENT
  Age: 33 Year
  Sex: Male

DRUGS (6)
  1. SUBOXONE FILM [Suspect]
     Indication: DRUG DEPENDENCE
     Dosage: SUBOXONE FILM
     Route: 060
  2. SUBOXONE FILM [Suspect]
     Dosage: SUBOXONE FILM
     Route: 060
  3. SUBOXONE TABLET [Suspect]
     Route: 065
  4. SUBOXONE TABLET [Suspect]
     Indication: DRUG DEPENDENCE
     Route: 060
  5. XANAX [Concomitant]
     Indication: PRODUCT USED FOR UNKNOWN INDICATION
     Dosage: DOSING DETAILS UNKNOWN
     Route: 065
  6. ANXIETY MEDICATION [Concomitant]
     Indication: ANXIETY
     Dosage: DOSING DETAILS UNKNOWN
     Route: 065

REACTIONS (2)
  - Convulsion [Recovered/Resolved]
  - Loss of consciousness [Recovered/Resolved]
